FAERS Safety Report 17149788 (Version 2)
Quarter: 2019Q4

REPORT INFORMATION
  Report Type: Spontaneous
  Country: CN (occurrence: CN)
  Receive Date: 20191213
  Receipt Date: 20191224
  Transmission Date: 20200122
  Serious: Yes (Other)
  Sender: FDA-Public Use
  Company Number: CN-ASTRAZENECA-2019SF79589

PATIENT
  Age: 57 Year
  Sex: Male
  Weight: 65 kg

DRUGS (2)
  1. IRESSA [Suspect]
     Active Substance: GEFITINIB
     Indication: NON-SMALL CELL LUNG CANCER
     Route: 048
     Dates: start: 201812, end: 201911
  2. TRADITIONAL CHINESE MEDICINE [Concomitant]
     Active Substance: HERBALS\HOMEOPATHICS
     Indication: ILL-DEFINED DISORDER
     Route: 048

REACTIONS (12)
  - Weight decreased [Unknown]
  - Inflammation [Unknown]
  - Malignant neoplasm progression [Unknown]
  - Pruritus [Unknown]
  - Dry skin [Unknown]
  - Decreased appetite [Unknown]
  - Drug resistance [Unknown]
  - Ulcer [Unknown]
  - Nausea [Unknown]
  - Vomiting [Unknown]
  - Metastasis [Unknown]
  - Dyspepsia [Unknown]
